FAERS Safety Report 6445153-9 (Version None)
Quarter: 2009Q4

REPORT INFORMATION
  Report Type: 
  Country: None (occurrence: None)
  Receive Date: 20091117
  Receipt Date: 20091117
  Transmission Date: 20100525
  Serious: Yes (Death)
  Sender: FDA-Public Use
  Company Number: None

PATIENT
  Sex: Male

DRUGS (2)
  1. PROGRAF [Suspect]
     Dosage: 1CAP TWICE A DAY BY MOUTH
     Route: 048
  2. MYCOPHENOLATE MOFETIL [Suspect]
     Dosage: 1 TAB TWICE A DAY BY MOUTH
     Route: 048

REACTIONS (1)
  - DEATH [None]
